FAERS Safety Report 22048847 (Version 2)
Quarter: 2023Q2

REPORT INFORMATION
  Report Type: Report from Study
  Country: CO (occurrence: CO)
  Receive Date: 20230301
  Receipt Date: 20230404
  Transmission Date: 20230722
  Serious: Yes (Hospitalization, Disabling, Other)
  Sender: FDA-Public Use
  Company Number: CO-ABBVIE-4215094

PATIENT
  Sex: Female

DRUGS (6)
  1. HUMIRA [Suspect]
     Active Substance: ADALIMUMAB
     Indication: Rheumatoid arthritis
     Route: 058
     Dates: start: 20180301, end: 20230215
  2. HUMIRA [Suspect]
     Active Substance: ADALIMUMAB
     Route: 058
  3. METHOTREXATE [Suspect]
     Active Substance: METHOTREXATE
     Indication: Product used for unknown indication
     Route: 065
     Dates: start: 2022
  4. METHOTREXATE [Suspect]
     Active Substance: METHOTREXATE
     Indication: Product used for unknown indication
     Dosage: 4 IN SATURDAYS AND 4 IN SUNDAYS
     Route: 048
     Dates: end: 2022
  5. PREDNISOLONE [Suspect]
     Active Substance: PREDNISOLONE
     Indication: Pain
     Dosage: 1 IN THE MORNING AND 1 AT NIGHT
     Route: 048
     Dates: start: 1994
  6. PREDNISOLONE [Suspect]
     Active Substance: PREDNISOLONE
     Indication: Pain
     Dosage: 1 IN THE MORNING
     Route: 048

REACTIONS (17)
  - Feeling cold [Recovered/Resolved]
  - Osteoarthritis [Recovering/Resolving]
  - Abdominal discomfort [Recovered/Resolved]
  - Malaise [Recovering/Resolving]
  - Immobile [Not Recovered/Not Resolved]
  - Gastric disorder [Recovering/Resolving]
  - Pain [Recovered/Resolved]
  - Hypotension [Recovered/Resolved]
  - Hypoaesthesia [Recovered/Resolved]
  - Bedridden [Recovering/Resolving]
  - Cataract [Not Recovered/Not Resolved]
  - Dysstasia [Recovering/Resolving]
  - Headache [Recovered/Resolved]
  - Tremor [Recovering/Resolving]
  - Visual impairment [Not Recovered/Not Resolved]
  - Device material opacification [Not Recovered/Not Resolved]
  - Tension [Unknown]

NARRATIVE: CASE EVENT DATE: 20210101
